FAERS Safety Report 24187229 (Version 1)
Quarter: 2024Q3

REPORT INFORMATION
  Report Type: Spontaneous
  Country: SE (occurrence: SE)
  Receive Date: 20240808
  Receipt Date: 20240808
  Transmission Date: 20241017
  Serious: Yes (Other)
  Sender: BRISTOL MYERS SQUIBB
  Company Number: None

PATIENT
  Age: 74 Year
  Sex: Male

DRUGS (7)
  1. NIVOLUMAB [Suspect]
     Active Substance: NIVOLUMAB
     Indication: Malignant melanoma
     Dosage: 480
     Route: 042
     Dates: start: 20231002
  2. NIVOLUMAB [Suspect]
     Active Substance: NIVOLUMAB
     Dosage: 480
     Route: 042
     Dates: start: 20231030
  3. NIVOLUMAB [Suspect]
     Active Substance: NIVOLUMAB
     Dosage: 480
     Route: 042
     Dates: start: 20231127
  4. NIVOLUMAB [Suspect]
     Active Substance: NIVOLUMAB
     Dosage: 480
     Route: 042
     Dates: start: 20231227
  5. NIVOLUMAB [Suspect]
     Active Substance: NIVOLUMAB
     Dosage: 480
     Route: 042
     Dates: start: 20240124
  6. NIVOLUMAB [Suspect]
     Active Substance: NIVOLUMAB
     Dosage: 480
     Route: 042
     Dates: start: 20240221
  7. NIVOLUMAB [Suspect]
     Active Substance: NIVOLUMAB
     Dosage: 480
     Route: 042
     Dates: start: 20240320

REACTIONS (4)
  - Sarcoid-like reaction [Recovering/Resolving]
  - Skin reaction [Recovered/Resolved]
  - Hypothyroidism [Recovering/Resolving]
  - Gastritis [Recovering/Resolving]

NARRATIVE: CASE EVENT DATE: 20231101
